FAERS Safety Report 10598366 (Version 1)
Quarter: 2014Q4

REPORT INFORMATION
  Report Type: Other
  Country: GB (occurrence: GB)
  Receive Date: 20141121
  Receipt Date: 20141121
  Transmission Date: 20150529
  Serious: Yes (Death, Other)
  Sender: FDA-Public Use
  Company Number: GB-MYLANLABS-2014M1010464

PATIENT

DRUGS (3)
  1. ACICLOVIR [Suspect]
     Active Substance: ACYCLOVIR
     Dosage: 1 G, TID
     Route: 042
     Dates: start: 20141006
  2. ACICLOVIR [Suspect]
     Active Substance: ACYCLOVIR
     Dosage: 10 MG/KG, TID
     Route: 042
     Dates: start: 20141006, end: 20141006
  3. ACICLOVIR [Suspect]
     Active Substance: ACYCLOVIR
     Indication: HERPES ZOSTER
     Dosage: 10 MG/KG, BID
     Route: 042
     Dates: start: 201409, end: 20141002

REACTIONS (3)
  - Coma [Not Recovered/Not Resolved]
  - Neurotoxicity [Fatal]
  - Overdose [Unknown]

NARRATIVE: CASE EVENT DATE: 201410
